FAERS Safety Report 7552508-8 (Version None)
Quarter: 2011Q2

REPORT INFORMATION
  Report Type: 
  Country: None (occurrence: None)
  Receive Date: 20110616
  Receipt Date: 20110606
  Transmission Date: 20111010
  Serious: Yes (Other)
  Sender: FDA-Public Use
  Company Number: US-BAYER-2011-048890

PATIENT
  Sex: Female

DRUGS (1)
  1. MIRENA [Suspect]
     Dosage: UNK
     Dates: start: 20110605

REACTIONS (4)
  - ABDOMINAL PAIN [None]
  - VAGINAL HAEMORRHAGE [None]
  - ASTHENIA [None]
  - FATIGUE [None]
